FAERS Safety Report 11177050 (Version 1)
Quarter: 2015Q2

REPORT INFORMATION
  Report Type: Spontaneous
  Country: LB (occurrence: None)
  Receive Date: 20150608
  Receipt Date: 20150608
  Transmission Date: 20150821
  Serious: Yes (Other)
  Sender: FDA-Public Use
  Company Number: 2015AJA00017

PATIENT
  Age: 22 Month
  Sex: Male

DRUGS (2)
  1. LEVETIRACETAM. [Suspect]
     Active Substance: LEVETIRACETAM
     Indication: EPILEPSY
  2. VALPROATE [Concomitant]
     Active Substance: VALPROATE SODIUM

REACTIONS (4)
  - Seizure [None]
  - Off label use [None]
  - Myoclonic epilepsy [None]
  - Atonic seizures [None]

NARRATIVE: CASE EVENT DATE: 20150212
